FAERS Safety Report 8757030 (Version 1)
Quarter: 2012Q4

REPORT INFORMATION
  Report Type: 
  Country: US (occurrence: US)
  Receive Date: 20120828
  Receipt Date: 20120828
  Transmission Date: 20130627
  Serious: Yes (Other)
  Sender: FDA-Public Use
  Company Number: US-FRI-1000038044

PATIENT
  Age: 28 Year
  Sex: Male

DRUGS (1)
  1. CELEXA [Suspect]
     Dosage: 60 mg
     Route: 048

REACTIONS (7)
  - Bradycardia [Unknown]
  - Atrial fibrillation [Unknown]
  - Syncope [Unknown]
  - Loss of consciousness [Unknown]
  - Dizziness [Unknown]
  - Blood potassium decreased [Unknown]
  - Prescribed overdose [Unknown]
